FAERS Safety Report 13393307 (Version 1)
Quarter: 2017Q1

REPORT INFORMATION
  Report Type: Report from Study
  Country: None (occurrence: BR)
  Receive Date: 20170331
  Receipt Date: 20170331
  Transmission Date: 20170429
  Serious: Yes (Other)
  Sender: FDA-Public Use
  Company Number: BR-ABBVIE-17P-020-1928968-00

PATIENT
  Sex: Female
  Weight: 80 kg

DRUGS (1)
  1. SYNTHROID [Suspect]
     Active Substance: LEVOTHYROXINE SODIUM
     Indication: HYPOTHYROIDISM
     Dosage: DAILY DOSE: 88 MCG IN THE MORNING (AFTER FASTING)
     Route: 065

REACTIONS (5)
  - Pain in extremity [Unknown]
  - Inappropriate schedule of drug administration [Unknown]
  - Vein disorder [Unknown]
  - Varicose vein [Recovered/Resolved]
  - Leiomyoma [Recovered/Resolved]
